FAERS Safety Report 11385928 (Version 6)
Quarter: 2016Q1

REPORT INFORMATION
  Report Type: Spontaneous
  Country: US (occurrence: US)
  Receive Date: 20150817
  Receipt Date: 20160114
  Transmission Date: 20160525
  Serious: Yes (Hospitalization, Other)
  Sender: FDA-Public Use
  Company Number: US-ROCHE-ITM201504IM014369

PATIENT
  Age: 71 Year
  Sex: Female
  Weight: 91.71 kg

DRUGS (4)
  1. KEFLEX [Concomitant]
     Active Substance: CEPHALEXIN
  2. BACLOFEN. [Concomitant]
     Active Substance: BACLOFEN
  3. ESBRIET [Suspect]
     Active Substance: PIRFENIDONE
     Indication: IDIOPATHIC PULMONARY FIBROSIS
     Route: 048
     Dates: start: 20150420
  4. BACTRIM [Concomitant]
     Active Substance: SULFAMETHOXAZOLE\TRIMETHOPRIM

REACTIONS (13)
  - Systemic lupus erythematosus [Unknown]
  - Nausea [Unknown]
  - Dizziness [Unknown]
  - Dizziness [Not Recovered/Not Resolved]
  - Sinus disorder [Unknown]
  - Cystitis [Unknown]
  - Malaise [Unknown]
  - Dyspepsia [Unknown]
  - Weight increased [Unknown]
  - Fatigue [Unknown]
  - Constipation [Unknown]
  - Abdominal pain [Unknown]
  - Pruritus [Unknown]

NARRATIVE: CASE EVENT DATE: 20160106
